FAERS Safety Report 4778461-8 (Version None)
Quarter: 2005Q3

REPORT INFORMATION
  Report Type: 
  Country: None (occurrence: None)
  Receive Date: 20050923
  Receipt Date: 20050923
  Transmission Date: 20060218
  Serious: Yes (Hospitalization)
  Sender: FDA-Public Use
  Company Number: None

PATIENT
  Age: 82 Year
  Sex: Male
  Weight: 73.9363 kg

DRUGS (1)
  1. COUMADIN [Suspect]
     Dosage: 4 MG PO QD  CHRONIC
     Route: 048

REACTIONS (1)
  - COAGULOPATHY [None]
